FAERS Safety Report 8505597-8 (Version None)
Quarter: 2012Q3

REPORT INFORMATION
  Report Type: 
  Country: None (occurrence: None)
  Receive Date: 20120712
  Receipt Date: 20120703
  Transmission Date: 20120928
  Serious: Yes (Other)
  Sender: FDA-Public Use
  Company Number: US-UCBSA-009528

PATIENT
  Age: 6 Month
  Sex: Male

DRUGS (2)
  1. KEPPRA [Suspect]
     Indication: EPILEPSY
     Route: 064
  2. FOLIC ACID [Concomitant]
     Route: 064
     Dates: start: 20080601

REACTIONS (4)
  - DEVELOPMENTAL DELAY [None]
  - FOETAL EXPOSURE DURING PREGNANCY [None]
  - CONVULSION [None]
  - TUBEROUS SCLEROSIS [None]
